FAERS Safety Report 4817624-X (Version None)
Quarter: 2005Q4

REPORT INFORMATION
  Report Type: 
  Country: None (occurrence: None)
  Receive Date: 20051019
  Receipt Date: 20050207
  Transmission Date: 20060501
  Serious: Yes (Hospitalization)
  Sender: FDA-Public Use
  Company Number: PHEH2004US09688

PATIENT
  Age: 62 Year
  Sex: Female

DRUGS (3)
  1. MIACALCIN [Suspect]
     Indication: OSTEOPOROSIS
     Dosage: 200 IU, QD, INTRANASAL
     Dates: start: 19990101, end: 20040818
  2. DARVOCET-N 100 [Concomitant]
  3. VALIUM [Concomitant]

REACTIONS (5)
  - BONE DENSITY DECREASED [None]
  - CAUTERY TO NOSE [None]
  - EPISTAXIS [None]
  - EXOSTOSIS [None]
  - SEPTOPLASTY [None]
